FAERS Safety Report 7930229-7 (Version None)
Quarter: 2011Q4

REPORT INFORMATION
  Report Type: 
  Country: None (occurrence: None)
  Receive Date: 20111121
  Receipt Date: 20111109
  Transmission Date: 20120403
  Serious: Yes (Hospitalization)
  Sender: FDA-Public Use
  Company Number: SE-BRACCO-000063

PATIENT
  Sex: Male

DRUGS (1)
  1. MULTIHANCE [Suspect]
     Indication: ANGIOGRAM
     Dosage: 7.7 GM
     Route: 042
     Dates: start: 20110926, end: 20110926

REACTIONS (4)
  - ANGIOEDEMA [None]
  - PRURITUS [None]
  - URTICARIA [None]
  - THROAT TIGHTNESS [None]
